FAERS Safety Report 20596774 (Version 6)
Quarter: 2022Q4

REPORT INFORMATION
  Report Type: Spontaneous
  Country: US (occurrence: US)
  Receive Date: 20220315
  Receipt Date: 20221007
  Transmission Date: 20230113
  Serious: Yes (Hospitalization, Other)
  Sender: FDA-Public Use
  Company Number: US-CLOVIS ONCOLOGY-CLO-2022-000352

PATIENT
  Age: 59 Year
  Sex: Female

DRUGS (1)
  1. RUBRACA [Suspect]
     Active Substance: RUCAPARIB CAMSYLATE
     Indication: Ovarian cancer
     Dosage: 400 MILLIGRAM, BID
     Route: 048
     Dates: start: 20220207

REACTIONS (10)
  - Status epilepticus [Recovered/Resolved]
  - Urinary tract infection [Unknown]
  - Cerebral disorder [Recovered/Resolved]
  - Amnesia [Not Recovered/Not Resolved]
  - Visual field defect [Not Recovered/Not Resolved]
  - Influenza like illness [Recovered/Resolved]
  - Headache [Unknown]
  - Pyrexia [Unknown]
  - Vomiting [Unknown]
  - Malaise [Recovered/Resolved]

NARRATIVE: CASE EVENT DATE: 20220301
